FAERS Safety Report 25030756 (Version 1)
Quarter: 2025Q1

REPORT INFORMATION
  Report Type: Spontaneous
  Country: US (occurrence: US)
  Receive Date: 20250303
  Receipt Date: 20250303
  Transmission Date: 20250408
  Serious: Yes (Other)
  Sender: MYLAN
  Company Number: US-MYLANLABS-2025M1011116

PATIENT
  Age: 52 Year
  Sex: Male
  Weight: 99.8 kg

DRUGS (2)
  1. ZOLOFT [Suspect]
     Active Substance: SERTRALINE HYDROCHLORIDE
     Indication: Product used for unknown indication
     Dosage: 100 MILLIGRAM, QD (1 EVERY 1 DAY)
  2. NITROSTAT [Suspect]
     Active Substance: NITROGLYCERIN
     Indication: Chest pain

REACTIONS (2)
  - Toe amputation [Unknown]
  - Foot operation [Unknown]

NARRATIVE: CASE EVENT DATE: 20060101
